FAERS Safety Report 8886921 (Version 1)
Quarter: 2012Q4

REPORT INFORMATION
  Report Type: 
  Country: US (occurrence: US)
  Receive Date: 20121105
  Receipt Date: 20121105
  Transmission Date: 20130627
  Serious: Yes (Other)
  Sender: FDA-Public Use
  Company Number: US-ASTRAZENECA-2012SE82249

PATIENT
  Age: 73 Year
  Sex: Male

DRUGS (4)
  1. TOPROL XL [Suspect]
     Route: 048
  2. CHEMO [Suspect]
     Route: 065
  3. RADIATION [Suspect]
     Route: 065
  4. SYMBICORT [Concomitant]

REACTIONS (3)
  - Lung neoplasm malignant [Unknown]
  - Amnesia [Unknown]
  - Gait disturbance [Unknown]
